FAERS Safety Report 9250430 (Version 1)
Quarter: 2013Q1

REPORT INFORMATION
  Report Type: Spontaneous
  Country: US (occurrence: None)
  Receive Date: 20130305
  Receipt Date: 20130305
  Transmission Date: 20140127
  Serious: Yes (Other)
  Sender: FDA-Public Use
  Company Number: 163-21880-12040600

PATIENT
  Age: 82 Year
  Sex: Female
  Weight: 73.48 kg

DRUGS (18)
  1. REVLIMID [Suspect]
     Indication: 5Q MINUS SYNDROME
     Route: 048
     Dates: start: 20090114
  2. PROCRIT [Concomitant]
  3. NEULASTA (PEGFILGRASTIM) [Concomitant]
  4. EXJADE (DEFERASIROX) [Concomitant]
  5. DEXAMETHASONE (DEXAMETHASONE) [Concomitant]
  6. DESFERAL (DEFEROXAMINE MESILATE) [Concomitant]
  7. PACKED RED BLOOD CELL TRANSFUSIONS (BLOOD CELLS, PACKED HUMAN) [Concomitant]
  8. PLATELET TRANSFUSIONS (PLATELETS) [Concomitant]
  9. CLOBETASOL (CLOBETASOL) [Concomitant]
  10. CYANOCOBALAMIN (CYANOCOBALAMIN) [Concomitant]
  11. FLONASE (FLUTICASONE PROPIONATE) [Concomitant]
  12. FUROSEMIDE (FUROSEMIDE) [Concomitant]
  13. LEVOTHYROXINE (LEVOTHYROXINE) [Concomitant]
  14. METOPROLOL TARTRATE (METOPROLOL TARTRATE) [Concomitant]
  15. POTASSIUM CHLORIDE (POTASSIUM CHLORIDE) [Concomitant]
  16. PRILOSEC [Concomitant]
  17. VYTORIN (INEGY) [Concomitant]
  18. B12 REPLACEMENT (CYANOCOBALAMIN) [Concomitant]

REACTIONS (2)
  - Thrombocytopenia [None]
  - Neutropenia [None]
